FAERS Safety Report 5027633-6 (Version None)
Quarter: 2006Q2

REPORT INFORMATION
  Report Type: 
  Country: None (occurrence: None)
  Receive Date: 20060614
  Receipt Date: 20060614
  Transmission Date: 20061013
  Serious: Yes (Life-Threatening, Hospitalization)
  Sender: FDA-Public Use
  Company Number: None

PATIENT
  Age: 44 Year
  Sex: Female
  Weight: 64.8644 kg

DRUGS (1)
  1. VENOFER [Suspect]
     Indication: IRON DEFICIENCY
     Dosage: 500 MG ONCE IV
     Route: 042
     Dates: start: 20060510, end: 20060510

REACTIONS (7)
  - DIARRHOEA [None]
  - HEART RATE DECREASED [None]
  - HYPERHIDROSIS [None]
  - INFUSION RELATED REACTION [None]
  - JOINT STIFFNESS [None]
  - JOINT SWELLING [None]
  - VOMITING [None]
